FAERS Safety Report 11678278 (Version 4)
Quarter: 2016Q4

REPORT INFORMATION
  Report Type: Report from Study
  Country: JP (occurrence: JP)
  Receive Date: 20151028
  Receipt Date: 20161014
  Transmission Date: 20170206
  Serious: Yes (Hospitalization)
  Sender: FDA-Public Use
  Company Number: PHJP2015JP018559

PATIENT
  Age: 45 Year
  Sex: Female
  Weight: 59 kg

DRUGS (10)
  1. ZYKADIA [Suspect]
     Active Substance: CERITINIB
     Dosage: 300 MG, UNK
     Route: 048
     Dates: start: 20151113, end: 20160210
  2. CITRIC ACID ANHYDROUS [Concomitant]
     Indication: ANAEMIA
     Dosage: 2 DF, UNK
     Route: 048
     Dates: start: 20151001
  3. ZYKADIA [Suspect]
     Active Substance: CERITINIB
     Dosage: 300 UNK, UNK
     Route: 048
     Dates: start: 20160315
  4. ZYKADIA [Suspect]
     Active Substance: CERITINIB
     Indication: LUNG NEOPLASM MALIGNANT
     Dosage: 750 MG, QD
     Route: 048
     Dates: start: 20150303, end: 20150407
  5. ZYKADIA [Suspect]
     Active Substance: CERITINIB
     Dosage: 300 MG, UNK
     Route: 048
     Dates: start: 20160226, end: 20160313
  6. MIYA-BM [Concomitant]
     Active Substance: CLOSTRIDIUM BUTYRICUM SPORES STRAIN M-55
     Indication: GASTROENTERITIS
     Dosage: 3 DF, UNK
     Route: 048
     Dates: start: 20150308
  7. ZYKADIA [Suspect]
     Active Substance: CERITINIB
     Dosage: 300 MG, UNK
     Route: 048
     Dates: start: 20160212, end: 20160224
  8. ZYKADIA [Suspect]
     Active Substance: CERITINIB
     Dosage: 600 MG, QD (DAILY)
     Route: 048
     Dates: start: 20150414, end: 20150529
  9. ZYKADIA [Suspect]
     Active Substance: CERITINIB
     Dosage: 450 MG, QD
     Route: 048
     Dates: start: 20150618, end: 20151021
  10. GLYCYRON [Concomitant]
     Active Substance: AMMONIUM GLYCYRRHIZATE\GLYCINE\METHIONINE
     Indication: HEPATIC FUNCTION ABNORMAL
     Dosage: 3 DF, UNK
     Route: 048
     Dates: start: 20150604, end: 20151027

REACTIONS (2)
  - Hepatic function abnormal [Recovering/Resolving]
  - Neutrophil count decreased [Recovering/Resolving]

NARRATIVE: CASE EVENT DATE: 20151001
